FAERS Safety Report 6317740-X (Version None)
Quarter: 2009Q3

REPORT INFORMATION
  Report Type: 
  Country: None (occurrence: None)
  Receive Date: 20090821
  Receipt Date: 20090814
  Transmission Date: 20100115
  Serious: Yes (Hospitalization)
  Sender: FDA-Public Use
  Company Number: PHHO2009FR09874

PATIENT
  Sex: Female

DRUGS (3)
  1. RAD 666 RAD+TAB [Suspect]
     Indication: ENDOMETRIAL CANCER METASTATIC
     Dosage: 10MG/DAY
     Route: 048
     Dates: start: 20090721, end: 20090810
  2. RAD 666 RAD+TAB [Suspect]
     Dosage: NO TREATMENT
     Dates: start: 20090811, end: 20090812
  3. RAD 666 RAD+TAB [Suspect]
     Dosage: 10MG/DAY
     Route: 048
     Dates: start: 20090813

REACTIONS (4)
  - ARTERIAL THROMBOSIS LIMB [None]
  - DEEP VEIN THROMBOSIS [None]
  - OEDEMA PERIPHERAL [None]
  - THROMBOPHLEBITIS SUPERFICIAL [None]
